FAERS Safety Report 26116916 (Version 1)
Quarter: 2025Q4

REPORT INFORMATION
  Report Type: Spontaneous
  Country: US (occurrence: None)
  Receive Date: 20251202
  Receipt Date: 20251202
  Transmission Date: 20260117
  Serious: Yes (Hospitalization)
  Sender: FDA-CTU
  Company Number: None

PATIENT
  Age: 63 Year
  Weight: 54 kg

DRUGS (1)
  1. CEFEPIME [Suspect]
     Active Substance: CEFEPIME HYDROCHLORIDE
     Indication: Osteomyelitis
     Dosage: 2 G GRAM(S) TWICE A DAY  INTRAVENOUS
     Route: 042
     Dates: start: 20251014, end: 20251121

REACTIONS (5)
  - Toxicity to various agents [None]
  - Neurotoxicity [None]
  - Tremor [None]
  - Paralysis [None]
  - Aphasia [None]

NARRATIVE: CASE EVENT DATE: 20251121
